FAERS Safety Report 19782150 (Version 2)
Quarter: 2021Q4

REPORT INFORMATION
  Report Type: Spontaneous
  Country: FR (occurrence: FR)
  Receive Date: 20210902
  Receipt Date: 20211215
  Transmission Date: 20220303
  Serious: Yes (Other)
  Sender: FDA-Public Use
  Company Number: None

PATIENT
  Age: 30 Year
  Sex: Female
  Weight: 56 kg

DRUGS (1)
  1. COMIRNATY [Suspect]
     Active Substance: TOZINAMERAN
     Indication: COVID-19 immunisation
     Dosage: DOSE 1, SINGLE
     Route: 030
     Dates: start: 20210802, end: 20210802

REACTIONS (4)
  - Migraine [Not Recovered/Not Resolved]
  - Dysstasia [Unknown]
  - Fatigue [Unknown]
  - Disability [Unknown]

NARRATIVE: CASE EVENT DATE: 20210803
